FAERS Safety Report 4761074-1 (Version None)
Quarter: 2005Q3

REPORT INFORMATION
  Report Type: 
  Country: None (occurrence: None)
  Receive Date: 20050901
  Receipt Date: 20050826
  Transmission Date: 20060218
  Serious: Yes (Death)
  Sender: FDA-Public Use
  Company Number: DEU-2004-0000875

PATIENT
  Age: 52 Year
  Sex: Male
  Weight: 82 kg

DRUGS (5)
  1. OXYGESIC 10 MG (OXY CR TAB 10 MG) (OXYCODONE HYDROCHLORIDE) CR TABLET [Suspect]
     Indication: CANCER PAIN
     Dosage: SEE IMAGE
     Route: 048
     Dates: start: 20030211, end: 20030217
  2. OXYGESIC 10 MG (OXY CR TAB 10 MG) (OXYCODONE HYDROCHLORIDE) CR TABLET [Suspect]
     Indication: CANCER PAIN
     Dosage: SEE IMAGE
     Route: 048
     Dates: start: 20030218, end: 20030303
  3. OXYGESIC 10 MG (OXY CR TAB 10 MG) (OXYCODONE HYDROCHLORIDE) CR TABLET [Suspect]
     Indication: CANCER PAIN
     Dosage: SEE IMAGE
     Route: 048
     Dates: start: 20030304
  4. DIMENHYDRINATE [Concomitant]
  5. METOCLOPRAMIDE [Concomitant]

REACTIONS (3)
  - MALIGNANT NEOPLASM PROGRESSION [None]
  - MARASMUS [None]
  - OSTEOSARCOMA METASTATIC [None]
